FAERS Safety Report 5758631-2 (Version None)
Quarter: 2008Q2

REPORT INFORMATION
  Report Type: 
  Country: None (occurrence: None)
  Receive Date: 20080530
  Receipt Date: 20080527
  Transmission Date: 20081010
  Serious: Yes (Death, Hospitalization)
  Sender: FDA-Public Use
  Company Number: THQ2008A00448

PATIENT
  Age: 82 Year
  Sex: Male

DRUGS (12)
  1. LEUPROLIDE ACETATE [Suspect]
     Indication: PROSTATE CANCER
     Dosage: 11.25 MG (11.25 MG, 1 IN 3 M) SUBCUTANEOUS
     Route: 058
  2. LIPITOR [Suspect]
     Indication: DRUG USE FOR UNKNOWN INDICATION
     Dosage: STRENGTH 10 MG PER ORAL
     Route: 048
  3. WARFARIN SODIUM [Suspect]
     Indication: DEEP VEIN THROMBOSIS
     Dosage: STRENGTH 2.5 MG PER ORAL
     Route: 048
     Dates: end: 20071214
  4. CIPROFLOXACIN [Suspect]
     Indication: URINARY TRACT INFECTION
     Dosage: 1 G PER ORAL
     Route: 048
     Dates: start: 20071101
  5. SELOKEN ZOC (METOPROLOL SUCCINATE) [Concomitant]
  6. ENALAPRIL MALEATE [Concomitant]
  7. HYDROCORTISONE [Concomitant]
  8. FUROSEMIDE [Concomitant]
  9. LEVOTHYROXINE SODIUM [Concomitant]
  10. SPIRONOLAKTON NYCOMED (SPIRONOLACTONE) [Concomitant]
  11. ACETYLSALICYLIC ACID SRT [Concomitant]
  12. NOVOMIX (INSULIN ASPART) [Concomitant]

REACTIONS (10)
  - DEPRESSION [None]
  - DRUG INTERACTION [None]
  - GENERAL PHYSICAL HEALTH DETERIORATION [None]
  - HEPATIC FAILURE [None]
  - INTERNATIONAL NORMALISED RATIO INCREASED [None]
  - KLEBSIELLA INFECTION [None]
  - LISTLESS [None]
  - LIVER DISORDER [None]
  - STAPHYLOCOCCAL SEPSIS [None]
  - URINARY TRACT INFECTION ENTEROCOCCAL [None]
